FAERS Safety Report 24946636 (Version 1)
Quarter: 2025Q1

REPORT INFORMATION
  Report Type: Spontaneous
  Country: DE (occurrence: DE)
  Receive Date: 20250210
  Receipt Date: 20250210
  Transmission Date: 20250408
  Serious: Yes (Life-Threatening)
  Sender: NOVO NORDISK
  Company Number: None

PATIENT
  Age: 89 Year
  Sex: Male
  Weight: 78 kg

DRUGS (6)
  1. LEVEMIR [Interacting]
     Active Substance: INSULIN DETEMIR
     Indication: Diabetes mellitus
  2. NOVORAPID [Interacting]
     Active Substance: INSULIN ASPART
     Indication: Diabetes mellitus
  3. PANCREATIN [Interacting]
     Active Substance: PANCRELIPASE
     Indication: Drug therapy
     Route: 048
     Dates: start: 2024
  4. RAMIPRIL [Concomitant]
     Active Substance: RAMIPRIL
     Indication: Hypertension
     Dosage: 2.5 MG, QD
  5. TAMSULOSIN [Concomitant]
     Active Substance: TAMSULOSIN
     Indication: Product used for unknown indication
  6. LATANOPROST [Concomitant]
     Active Substance: LATANOPROST
     Indication: Product used for unknown indication

REACTIONS (2)
  - Drug interaction [Recovered/Resolved]
  - Hypoglycaemia [Recovered/Resolved]

NARRATIVE: CASE EVENT DATE: 20241021
